FAERS Safety Report 6413462-5 (Version None)
Quarter: 2009Q4

REPORT INFORMATION
  Report Type: 
  Country: None (occurrence: None)
  Receive Date: 20091026
  Receipt Date: 20091019
  Transmission Date: 20100525
  Serious: Yes (Hospitalization)
  Sender: FDA-Public Use
  Company Number: US-AVENTIS-200919385US

PATIENT
  Sex: Female

DRUGS (4)
  1. LOVENOX [Suspect]
     Route: 051
     Dates: start: 20090901, end: 20091001
  2. ANTIEMETICS AND ANTINAUSEANTS [Concomitant]
     Dosage: DOSE: UNK
  3. STOOL SOFTENER [Concomitant]
     Dosage: DOSE: UNK
  4. ANALGESICS [Concomitant]
     Dosage: DOSE: UNK

REACTIONS (2)
  - COAGULATION TIME PROLONGED [None]
  - PLEURAL EFFUSION [None]
